FAERS Safety Report 15921425 (Version 2)
Quarter: 2019Q1

REPORT INFORMATION
  Report Type: Spontaneous
  Country: US (occurrence: US)
  Receive Date: 20190205
  Receipt Date: 20190219
  Transmission Date: 20190417
  Serious: No
  Sender: FDA-Public Use
  Company Number: US-ALLERGAN-1719317US

PATIENT
  Sex: Female
  Weight: 58.96 kg

DRUGS (1)
  1. BOTOX [Suspect]
     Active Substance: ONABOTULINUMTOXINA
     Indication: PARALYSIS
     Dosage: 2 ML, SINGLE
     Route: 030
     Dates: start: 20170420, end: 20170420

REACTIONS (1)
  - Off label use [Unknown]
